FAERS Safety Report 7063222-X (Version None)
Quarter: 2010Q4

REPORT INFORMATION
  Report Type: 
  Country: None (occurrence: None)
  Receive Date: 20101026
  Receipt Date: 20100708
  Transmission Date: 20110411
  Serious: No
  Sender: FDA-Public Use
  Company Number: US-PFIZER INC-2010085353

PATIENT
  Sex: Male
  Weight: 76.2 kg

DRUGS (11)
  1. LIPITOR [Suspect]
     Indication: CARDIAC DISORDER
     Dosage: UNK
     Dates: start: 19990101
  2. NIASPAN [Suspect]
     Indication: CARDIAC DISORDER
     Dosage: 1000 MG, AT BED TIME
     Route: 048
     Dates: start: 20000101
  3. CRESTOR [Suspect]
     Indication: CARDIAC DISORDER
     Dosage: 10 MG, 1X/DAY
     Route: 048
     Dates: start: 20080101
  4. METOPROLOL SUCCINATE [Concomitant]
     Indication: HYPERTENSION
     Dosage: 50 MG, 1X/DAY
     Route: 048
  5. ACETYLSALICYLIC ACID [Concomitant]
     Indication: THROMBOSIS
     Dosage: 325 MG, 1X/DAY
     Route: 048
  6. PANTOPRAZOLE [Concomitant]
     Indication: GASTROOESOPHAGEAL REFLUX DISEASE
     Dosage: 40 MG, 1X/DAY
     Route: 048
  7. GLIPIZIDE [Concomitant]
     Indication: DIABETES MELLITUS
     Dosage: 5 MG, 1X/DAY
     Route: 048
  8. TRIMETHOPRIM [Concomitant]
     Dosage: 100 MG, 1X/DAY
     Route: 048
  9. TRAMADOL [Concomitant]
     Indication: ARTHRITIS
     Dosage: 50 MG, AS NEEDED
     Route: 048
  10. DUTASTERIDE [Concomitant]
     Indication: BLOOD URINE PRESENT
     Dosage: 0.5 MG, 1X/DAY
     Route: 048
  11. TERAZOSIN [Concomitant]
     Indication: BLOOD URINE PRESENT
     Dosage: 1 MG, 1X/DAY
     Route: 048

REACTIONS (2)
  - FLUSHING [None]
  - MYALGIA [None]
